FAERS Safety Report 19971754 (Version 1)
Quarter: 2021Q4

REPORT INFORMATION
  Report Type: Spontaneous
  Country: US (occurrence: US)
  Receive Date: 20211020
  Receipt Date: 20211020
  Transmission Date: 20220303
  Serious: No
  Sender: FDA-Public Use
  Company Number: US-BRISTOL-MYERS SQUIBB COMPANY-BMS-2021-107703

PATIENT
  Age: 97 Year
  Sex: Male
  Weight: 68.03 kg

DRUGS (1)
  1. ELIQUIS [Suspect]
     Active Substance: APIXABAN
     Indication: Cerebrovascular accident prophylaxis
     Dosage: UNK UNK, QD
     Route: 048
     Dates: start: 2018

REACTIONS (3)
  - Dizziness [Unknown]
  - Fall [Unknown]
  - Intentional product use issue [Unknown]
